FAERS Safety Report 5128677-6 (Version None)
Quarter: 2006Q4

REPORT INFORMATION
  Report Type: 
  Country: None (occurrence: None)
  Receive Date: 20061011
  Receipt Date: 20060927
  Transmission Date: 20070319
  Serious: Yes (Other)
  Sender: FDA-Public Use
  Company Number: 230522

PATIENT
  Age: 65 Year
  Sex: Female

DRUGS (1)
  1. RAPTIVA [Suspect]
     Indication: DRUG USE FOR UNKNOWN INDICATION
     Dates: start: 20060201, end: 20060501

REACTIONS (3)
  - AUTOIMMUNE HEPATITIS [None]
  - HEPATOCELLULAR DAMAGE [None]
  - INJURY [None]
